FAERS Safety Report 8972097 (Version 1)
Quarter: 2012Q4

REPORT INFORMATION
  Report Type: Report from Study
  Country: US (occurrence: US)
  Receive Date: 20121218
  Receipt Date: 20121218
  Transmission Date: 20130627
  Serious: Yes (Other)
  Sender: FDA-Public Use
  Company Number: US-JNJFOC-20121205913

PATIENT
  Sex: Male
  Weight: 83.92 kg

DRUGS (2)
  1. INVEGA [Suspect]
     Indication: PRODUCT USED FOR UNKNOWN INDICATION
     Dosage: initiated on an unspecified date in APR or MAY-2011
     Route: 048
     Dates: start: 2011
  2. HALOPERIDOL [Suspect]
     Indication: PRODUCT USED FOR UNKNOWN INDICATION
     Dosage: initiated on an unspecified date in APR or MAY-2011
     Route: 030
     Dates: start: 2011

REACTIONS (1)
  - Weight increased [Recovering/Resolving]
